FAERS Safety Report 20088267 (Version 2)
Quarter: 2022Q1

REPORT INFORMATION
  Report Type: Spontaneous
  Country: US (occurrence: US)
  Receive Date: 20211118
  Receipt Date: 20220120
  Transmission Date: 20220423
  Serious: Yes (Other)
  Sender: FDA-Public Use
  Company Number: US-JNJFOC-20211109452

PATIENT

DRUGS (2)
  1. DARATUMUMAB [Suspect]
     Active Substance: DARATUMUMAB
     Indication: Product used for unknown indication
     Route: 065
  2. DEXAMETHASONE [Suspect]
     Active Substance: DEXAMETHASONE
     Indication: Product used for unknown indication
     Route: 065

REACTIONS (20)
  - Thrombocytopenia [Unknown]
  - Headache [Unknown]
  - Feeling jittery [Unknown]
  - Increased appetite [Unknown]
  - Fatigue [Unknown]
  - Hyperhidrosis [Unknown]
  - Dyspnoea [Unknown]
  - Arthralgia [Unknown]
  - Back pain [Unknown]
  - Anxiety [Unknown]
  - Insomnia [Unknown]
  - Dry mouth [Unknown]
  - Eye pruritus [Unknown]
  - Eye swelling [Unknown]
  - Rhinorrhoea [Unknown]
  - Exostosis [Unknown]
  - Myalgia [Unknown]
  - Dry eye [Unknown]
  - Cough [Unknown]
  - Skin hyperpigmentation [Unknown]
